FAERS Safety Report 18030534 (Version 2)
Quarter: 2020Q4

REPORT INFORMATION
  Report Type: Report from Study
  Country: US (occurrence: US)
  Receive Date: 20200715
  Receipt Date: 20201121
  Transmission Date: 20210113
  Serious: No
  Sender: FDA-Public Use
  Company Number: NVSC2020US197391

PATIENT
  Sex: Female

DRUGS (2)
  1. GILENYA [Suspect]
     Active Substance: FINGOLIMOD HYDROCHLORIDE
     Dosage: 0.5 MG
     Route: 048
  2. GILENYA [Suspect]
     Active Substance: FINGOLIMOD HYDROCHLORIDE
     Indication: MULTIPLE SCLEROSIS
     Dosage: 0.5 MG
     Route: 048

REACTIONS (8)
  - Sleep disorder [Unknown]
  - Headache [Unknown]
  - Confusional state [Unknown]
  - Pain in extremity [Unknown]
  - Hypohidrosis [Unknown]
  - Peroneal nerve palsy [Unknown]
  - Discomfort [Unknown]
  - Feeling abnormal [Unknown]
